FAERS Safety Report 4997141-7 (Version None)
Quarter: 2006Q2

REPORT INFORMATION
  Report Type: 
  Country: None (occurrence: None)
  Receive Date: 20060505
  Receipt Date: 20060505
  Transmission Date: 20061013
  Serious: No
  Sender: FDA-Public Use
  Company Number: None

PATIENT

DRUGS (1)
  1. SUCCINYLCHOLINE CHLORIDE  200MG  20MG/ ML  HOSPIRA INC [Suspect]
     Indication: SURGERY
     Dosage: ONCE IV BOLUS
     Route: 040
     Dates: start: 20060501, end: 20060501

REACTIONS (1)
  - DRUG INEFFECTIVE [None]
